FAERS Safety Report 8546209-7 (Version None)
Quarter: 2012Q3

REPORT INFORMATION
  Report Type: 
  Country: None (occurrence: None)
  Receive Date: 20120727
  Receipt Date: 20120726
  Transmission Date: 20120928
  Serious: Yes (Other)
  Sender: FDA-Public Use
  Company Number: GXKR2012DE001023

PATIENT
  Sex: Male
  Weight: 83 kg

DRUGS (1)
  1. RAMIPRIL [Suspect]
     Indication: HYPERTENSION
     Dosage: 1 DF, QD
     Route: 048
     Dates: start: 20070101, end: 20120101

REACTIONS (5)
  - MACULAR DEGENERATION [None]
  - VISUAL ACUITY REDUCED [None]
  - EYE IRRITATION [None]
  - EYE INFLAMMATION [None]
  - PHOTOPSIA [None]
